FAERS Safety Report 16909445 (Version 1)
Quarter: 2019Q4

REPORT INFORMATION
  Report Type: Spontaneous
  Country: US (occurrence: US)
  Receive Date: 20191011
  Receipt Date: 20191011
  Transmission Date: 20200122
  Serious: Yes (Other)
  Sender: FDA-Public Use
  Company Number: US-PFIZER INC-2019439972

PATIENT
  Age: 24 Year
  Sex: Female

DRUGS (1)
  1. EPINEPHRINE. [Suspect]
     Active Substance: EPINEPHRINE
     Indication: ANAESTHESIA
     Dosage: UNK (INJECTION, 2.5 CC., STAGGERED LATERAL INJECTIONS 1 CC. 1/4 INTERNAL SIDE AT THE LEVEL OF THE 2)

REACTIONS (1)
  - Gangrene [Unknown]
